FAERS Safety Report 17232645 (Version 4)
Quarter: 2020Q1

REPORT INFORMATION
  Report Type: Report from Study
  Country: US (occurrence: US)
  Receive Date: 20200103
  Receipt Date: 20200115
  Transmission Date: 20200409
  Serious: Yes (Life-Threatening, Hospitalization)
  Sender: FDA-Public Use
  Company Number: US-JNJFOC-20200100493

PATIENT
  Age: 72 Year
  Sex: Female

DRUGS (22)
  1. SIMPONI ARIA [Suspect]
     Active Substance: GOLIMUMAB
     Indication: RHEUMATOID ARTHRITIS
     Dosage: 2 MG/KG
     Route: 042
     Dates: start: 20161209, end: 20170106
  2. SIMPONI ARIA [Suspect]
     Active Substance: GOLIMUMAB
     Dosage: 2 MG/KG
     Route: 042
     Dates: start: 20170818, end: 20171013
  3. SIMPONI ARIA [Suspect]
     Active Substance: GOLIMUMAB
     Dosage: 2 MG/KG
     Route: 042
     Dates: start: 20190306, end: 20190306
  4. ALNBUTEROL SULFATE [Concomitant]
     Indication: DYSPNOEA
     Route: 055
  5. SIMPONI ARIA [Suspect]
     Active Substance: GOLIMUMAB
     Dosage: 2 MG/KG
     Route: 042
     Dates: start: 20170303, end: 20170428
  6. SIMPONI ARIA [Suspect]
     Active Substance: GOLIMUMAB
     Dosage: 2 MG/KG
     Route: 042
     Dates: start: 20170623, end: 20170623
  7. POTASSIUM CHLORIDE. [Concomitant]
     Active Substance: POTASSIUM CHLORIDE
     Indication: HYPOKALAEMIA
     Route: 048
     Dates: start: 20160720
  8. VITAMIN D                          /00318501/ [Concomitant]
     Active Substance: CHOLECALCIFEROL
     Indication: VITAMIN D DEFICIENCY
     Route: 048
  9. AMLODIPINE [Concomitant]
     Active Substance: AMLODIPINE BESYLATE
     Indication: HYPERTENSION
     Route: 048
  10. WELCHOL [Concomitant]
     Active Substance: COLESEVELAM HYDROCHLORIDE
     Indication: HYPERCHOLESTEROLAEMIA
     Route: 048
  11. SIMPONI ARIA [Suspect]
     Active Substance: GOLIMUMAB
     Dosage: 2 MG/KG
     Route: 042
     Dates: start: 20181113, end: 20190108
  12. NEURONTIN [Concomitant]
     Active Substance: GABAPENTIN
     Indication: ARTHRALGIA
     Route: 048
     Dates: start: 20160720
  13. MELOXICAM. [Concomitant]
     Active Substance: MELOXICAM
     Indication: ARTHRALGIA
     Route: 048
     Dates: start: 20160720
  14. FUROSEMIDE. [Concomitant]
     Active Substance: FUROSEMIDE
     Indication: OEDEMA
     Route: 048
  15. SERTRALINE HCL [Concomitant]
     Active Substance: SERTRALINE HYDROCHLORIDE
     Indication: DEPRESSION
     Route: 048
  16. PRAVASTATIN SODIUM. [Concomitant]
     Active Substance: PRAVASTATIN SODIUM
     Indication: BLOOD CHOLESTEROL INCREASED
     Route: 048
  17. METHOTREXATE. [Concomitant]
     Active Substance: METHOTREXATE
     Route: 058
     Dates: start: 20160808
  18. FOLIC ACID. [Concomitant]
     Active Substance: FOLIC ACID
     Route: 048
     Dates: start: 20160822
  19. CARVEDILOL. [Concomitant]
     Active Substance: CARVEDILOL
     Indication: HYPERTENSION
     Route: 048
  20. SIMPONI ARIA [Suspect]
     Active Substance: GOLIMUMAB
     Dosage: 2 MG/KG
     Route: 042
     Dates: start: 20171208, end: 20180909
  21. RAMIPRIL. [Concomitant]
     Active Substance: RAMIPRIL
     Indication: HYPERTENSION
     Route: 048
  22. SIMPONI ARIA [Suspect]
     Active Substance: GOLIMUMAB
     Dosage: 2 MG/KG
     Route: 042
     Dates: start: 20190517, end: 20190715

REACTIONS (4)
  - Pneumonia [Recovered/Resolved with Sequelae]
  - Acute respiratory failure [Recovered/Resolved]
  - Acute kidney injury [Recovered/Resolved]
  - Sepsis [Recovered/Resolved with Sequelae]

NARRATIVE: CASE EVENT DATE: 20190811
